FAERS Safety Report 6342470-8 (Version None)
Quarter: 2009Q3

REPORT INFORMATION
  Report Type: 
  Country: None (occurrence: None)
  Receive Date: 20090908
  Receipt Date: 20090904
  Transmission Date: 20100115
  Serious: Yes (Death, Life-Threatening, Hospitalization)
  Sender: FDA-Public Use
  Company Number: JP-ELI_LILLY_AND_COMPANY-JP200907004613

PATIENT
  Sex: Male

DRUGS (6)
  1. GEMZAR [Suspect]
     Indication: PANCREATIC CARCINOMA STAGE IV
     Dosage: 1400 MG, OTHER
     Route: 042
     Dates: start: 20090526, end: 20090602
  2. GEMZAR [Suspect]
     Dosage: 1200 MG, OTHER
     Route: 042
     Dates: start: 20090616, end: 20090714
  3. HARNAL [Concomitant]
     Dosage: 0.2 MG, DAILY (1/D)
     Route: 048
  4. MAGLAX [Concomitant]
     Dosage: 330 MG, 3/D
     Route: 048
  5. CERNILTON [Concomitant]
     Dosage: 126 MG, 2/D
     Route: 048
  6. MUCOSTA [Concomitant]
     Dosage: 100 MG, 3/D
     Route: 048

REACTIONS (4)
  - ACUTE MYOCARDIAL INFARCTION [None]
  - CEREBRAL INFARCTION [None]
  - INTERSTITIAL LUNG DISEASE [None]
  - PLATELET COUNT DECREASED [None]
